FAERS Safety Report 9697529 (Version 1)
Quarter: 2013Q4

REPORT INFORMATION
  Report Type: Spontaneous
  Country: US (occurrence: US)
  Receive Date: 20131120
  Receipt Date: 20131120
  Transmission Date: 20140711
  Serious: No
  Sender: FDA-Public Use
  Company Number: US-BAYER-2013-141986

PATIENT
  Sex: Female

DRUGS (2)
  1. FINACEA [Suspect]
     Dosage: UNK
     Dates: start: 20131118
  2. FINACEA [Suspect]
     Dosage: UNK
     Dates: start: 201301

REACTIONS (2)
  - Pain [None]
  - Pain [None]
